FAERS Safety Report 24827659 (Version 1)
Quarter: 2025Q1

REPORT INFORMATION
  Report Type: Report from Study
  Country: KR (occurrence: KR)
  Receive Date: 20250109
  Receipt Date: 20250109
  Transmission Date: 20250409
  Serious: Yes (Other)
  Sender: JAZZ
  Company Number: KR-BR-LTD-OS-401-019-001

PATIENT
  Age: 80 Year
  Sex: Male
  Weight: 50.3 kg

DRUGS (9)
  1. LURBINECTEDIN [Suspect]
     Active Substance: LURBINECTEDIN
     Indication: Small cell lung cancer
     Dosage: 3.2 MILLIGRAM/SQ. METER, Q3W
     Route: 042
     Dates: start: 20231016
  2. DEXAMETHASONE [Concomitant]
     Active Substance: DEXAMETHASONE
     Indication: Prophylaxis
     Dosage: 8 MILLILITER, QD
     Route: 042
     Dates: start: 20231013, end: 20231016
  3. MACPERAN [METOCLOPRAMIDE HYDROCHLORIDE] [Concomitant]
     Indication: Prophylaxis
     Dosage: 2 MILLILITER, TID
     Route: 042
     Dates: start: 20231016, end: 20231029
  4. MAGNESIUM HYDROXIDE [Concomitant]
     Active Substance: MAGNESIUM HYDROXIDE
     Indication: Prophylaxis
     Dosage: 500 MILLIGRAM, TID
     Route: 048
     Dates: start: 20231017, end: 20231025
  5. ITOPRIDE [Concomitant]
     Active Substance: ITOPRIDE
     Indication: Prophylaxis
     Dosage: 50 MILLIGRAM, TID
     Route: 048
     Dates: start: 20231017, end: 20231029
  6. CODEINE [Concomitant]
     Active Substance: CODEINE
     Indication: Prophylaxis
     Dosage: 20 MILLIGRAM, TID
     Route: 048
     Dates: start: 20231017, end: 20231029
  7. SULFOLASE [Concomitant]
     Indication: Chronic obstructive pulmonary disease
     Route: 048
     Dates: start: 20231017, end: 20231029
  8. CODAEWON [Concomitant]
     Indication: Prophylaxis
     Route: 048
     Dates: start: 20231017, end: 20231029
  9. AZITHROMYCIN [Concomitant]
     Active Substance: AZITHROMYCIN
     Indication: Pneumonia
     Dosage: 18 GRAM, QD
     Route: 042
     Dates: start: 20231022, end: 20231026

REACTIONS (1)
  - Pancytopenia [Not Recovered/Not Resolved]

NARRATIVE: CASE EVENT DATE: 20231026
